FAERS Safety Report 9631088 (Version 1)
Quarter: 2013Q4

REPORT INFORMATION
  Report Type: Spontaneous
  Country: AU (occurrence: None)
  Receive Date: 20131015
  Receipt Date: 20131015
  Transmission Date: 20140711
  Serious: Yes (Hospitalization)
  Sender: FDA-Public Use
  Company Number: 2013-003138

PATIENT
  Age: 70 Year
  Sex: Male
  Weight: 79 kg

DRUGS (11)
  1. ACTONEL (RISEDRONATE SODIUM) TABLET, 150 MG [Suspect]
     Dosage: ONCE
     Route: 048
     Dates: start: 20100301
  2. SPREN [Concomitant]
  3. PLAVIX [Concomitant]
  4. DURIDE [Concomitant]
  5. METOPROLOL [Concomitant]
  6. SOMAC [Concomitant]
  7. PROGOUT [Concomitant]
  8. METFORMIN [Concomitant]
  9. NITROLINGUAL-SPRAY [Concomitant]
  10. ANGININE [Concomitant]
  11. NAPROSYN [Concomitant]

REACTIONS (4)
  - Myocardial infarction [None]
  - Type 2 diabetes mellitus [None]
  - Angina pectoris [None]
  - Vertigo [None]
